FAERS Safety Report 18819615 (Version 2)
Quarter: 2021Q1

REPORT INFORMATION
  Report Type: Spontaneous
  Country: US (occurrence: US)
  Receive Date: 20210201
  Receipt Date: 20210219
  Transmission Date: 20210419
  Serious: No
  Sender: FDA-Public Use
  Company Number: US-PFIZER INC-2021082692

PATIENT
  Age: 59 Year
  Sex: Female
  Weight: 107.95 kg

DRUGS (2)
  1. XELJANZ XR [Suspect]
     Active Substance: TOFACITINIB CITRATE
     Indication: ARTHRITIS
     Dosage: 11 MG, 1X/DAY (IN THE MORNING)
     Dates: start: 20210115, end: 2021
  2. RISPERDAL [Concomitant]
     Active Substance: RISPERIDONE
     Dosage: 6 MG (3MG IN THE MORNING, 3MG AT NIGHT)
     Dates: start: 1997

REACTIONS (4)
  - Depression [Unknown]
  - Off label use [Unknown]
  - Axillary pain [Not Recovered/Not Resolved]
  - Breast pain [Not Recovered/Not Resolved]

NARRATIVE: CASE EVENT DATE: 2021
